FAERS Safety Report 14068428 (Version 1)
Quarter: 2017Q4

REPORT INFORMATION
  Report Type: Spontaneous
  Country: US (occurrence: US)
  Receive Date: 20171010
  Receipt Date: 20171010
  Transmission Date: 20180321
  Serious: Yes (Hospitalization)
  Sender: FDA-Public Use
  Company Number: US-ALKEM LABORATORIES LIMITED-US-ALKEM-2017-00628

PATIENT
  Age: 27 Year
  Sex: Male

DRUGS (3)
  1. OLANZAPINE. [Suspect]
     Active Substance: OLANZAPINE
     Indication: MENTAL DISORDER
     Dosage: UNKNOWN
     Route: 065
  2. BUPROPION. [Suspect]
     Active Substance: BUPROPION
     Indication: MENTAL DISORDER
     Dosage: UNKNOWN
     Route: 065
  3. BEZTROPINE [Suspect]
     Active Substance: BENZTROPINE
     Indication: MENTAL DISORDER
     Dosage: UNKNOWN
     Route: 065

REACTIONS (6)
  - Vomiting [None]
  - Heart rate increased [None]
  - Haematochezia [None]
  - Colitis ischaemic [Recovered/Resolved]
  - Constipation [None]
  - Blood pressure systolic increased [None]
